FAERS Safety Report 5133796-4 (Version None)
Quarter: 2006Q4

REPORT INFORMATION
  Report Type: 
  Country: None (occurrence: None)
  Receive Date: 20061018
  Receipt Date: 20061005
  Transmission Date: 20070319
  Serious: Yes (Death)
  Sender: FDA-Public Use
  Company Number: 0610021

PATIENT
  Sex: Male

DRUGS (1)
  1. ORFADIN [Suspect]
     Indication: TYROSINAEMIA
     Dosage: 2 MILLIGRAM TWICE DAILY
     Dates: start: 20060817, end: 20060817

REACTIONS (2)
  - HEPATIC FAILURE [None]
  - NEONATAL DISORDER [None]
